FAERS Safety Report 6419718-4 (Version None)
Quarter: 2009Q4

REPORT INFORMATION
  Report Type: 
  Country: None (occurrence: None)
  Receive Date: 20091013
  Receipt Date: 20090602
  Transmission Date: 20100525
  Serious: No
  Sender: FDA-Public Use
  Company Number: 2009BM000121

PATIENT
  Age: 16 Year
  Sex: Male

DRUGS (3)
  1. KUVAN [Suspect]
     Indication: PHENYLKETONURIA
     Dosage: 1600 MG;QD;PO; 1600 MG;QD;PO
     Route: 048
     Dates: start: 20090527, end: 20090605
  2. KUVAN [Suspect]
     Indication: PHENYLKETONURIA
     Dosage: 1600 MG;QD;PO; 1600 MG;QD;PO
     Route: 048
     Dates: start: 20090619
  3. NUTRIENTS WITHOUT PHENYLALANINE (CON.) [Concomitant]

REACTIONS (3)
  - AMINO ACID LEVEL ABNORMAL [None]
  - PAIN IN EXTREMITY [None]
  - STAPHYLOCOCCAL INFECTION [None]
